FAERS Safety Report 24995729 (Version 1)
Quarter: 2025Q1

REPORT INFORMATION
  Report Type: Spontaneous
  Country: ES (occurrence: ES)
  Receive Date: 20250221
  Receipt Date: 20250221
  Transmission Date: 20250409
  Serious: Yes (Hospitalization)
  Sender: FRESENIUS KABI
  Company Number: None

PATIENT
  Sex: Female

DRUGS (1)
  1. FUROSEMIDE [Suspect]
     Active Substance: FUROSEMIDE
     Indication: Cardiorenal syndrome
     Route: 042
     Dates: start: 20241205

REACTIONS (2)
  - Uraemic encephalopathy [Unknown]
  - Medication error [Unknown]

NARRATIVE: CASE EVENT DATE: 20241213
